FAERS Safety Report 16133272 (Version 1)
Quarter: 2019Q1

REPORT INFORMATION
  Report Type: Spontaneous
  Country: FR (occurrence: FR)
  Receive Date: 20190329
  Receipt Date: 20190329
  Transmission Date: 20190418
  Serious: Yes (Other)
  Sender: FDA-Public Use
  Company Number: FR-BAYER-2019-027642

PATIENT
  Age: 27 Year
  Sex: Female

DRUGS (3)
  1. MIRENA [Suspect]
     Active Substance: LEVONORGESTREL
     Dosage: 20 MCG/24HR, CONT
     Route: 015
     Dates: start: 20111020, end: 2013
  2. MIRENA [Suspect]
     Active Substance: LEVONORGESTREL
     Dosage: 20 MCG/24HR, CONT
     Route: 015
     Dates: start: 20180502
  3. MIRENA [Suspect]
     Active Substance: LEVONORGESTREL

REACTIONS (9)
  - Peritoneal haemorrhage [None]
  - Drug ineffective [None]
  - Ectopic pregnancy with contraceptive device [None]
  - Device dislocation [None]
  - Device issue [None]
  - Pelvic pain [None]
  - Haematosalpinx [None]
  - Vaginal haemorrhage [None]
  - Dyspareunia [None]

NARRATIVE: CASE EVENT DATE: 20130923
